FAERS Safety Report 7293361-X (Version None)
Quarter: 2011Q1

REPORT INFORMATION
  Report Type: 
  Country: None (occurrence: None)
  Receive Date: 20110215
  Receipt Date: 20110204
  Transmission Date: 20110831
  Serious: Yes (Death)
  Sender: FDA-Public Use
  Company Number: US-WATSON-2011-00042

PATIENT
  Sex: Female
  Weight: 68.9 kg

DRUGS (12)
  1. FENTANYL-75 [Suspect]
     Indication: SPINAL OSTEOARTHRITIS
  2. CELEBREX [Concomitant]
     Indication: PRODUCT USED FOR UNKNOWN INDICATION
     Dosage: 200 MG, DAILY
     Route: 065
  3. FENTANYL-75 [Suspect]
     Indication: SPONDYLOLYSIS
  4. FENTANYL-25 [Concomitant]
     Indication: SPINAL OSTEOARTHRITIS
     Dosage: UNK
     Route: 062
     Dates: start: 20090421
  5. OXYCODONE HCL AND ACETAMINOPHEN [Concomitant]
     Indication: PRODUCT USED FOR UNKNOWN INDICATION
     Dosage: UNK
     Route: 048
     Dates: start: 20090101
  6. HYDROCODONE BITARTRATE/ACETAMINOPHEN 10/500 (WATSON LABORATORIES) [Concomitant]
     Indication: PRODUCT USED FOR UNKNOWN INDICATION
     Dosage: UNK
     Route: 048
     Dates: start: 20090401
  7. EFFEXOR [Concomitant]
     Indication: PRODUCT USED FOR UNKNOWN INDICATION
     Dosage: UNK
     Route: 065
  8. ANUCORT-HC [Concomitant]
     Indication: PRODUCT USED FOR UNKNOWN INDICATION
     Dosage: UNK
     Route: 054
     Dates: start: 20090101
  9. OPANA ER [Concomitant]
     Indication: PRODUCT USED FOR UNKNOWN INDICATION
     Dosage: UNK
     Route: 048
     Dates: start: 20090301
  10. FENTANYL-25 [Concomitant]
     Indication: SPONDYLOLYSIS
  11. LYRICA [Concomitant]
     Indication: PRODUCT USED FOR UNKNOWN INDICATION
     Dosage: 75 MG, TID
     Route: 065
  12. FENTANYL-75 [Suspect]
     Indication: BACK PAIN
     Dosage: 1 PATCH Q 3 DAYS
     Route: 062
     Dates: start: 20090501, end: 20090502

REACTIONS (3)
  - COMPLETED SUICIDE [None]
  - OVERDOSE [None]
  - DRUG LEVEL INCREASED [None]
